FAERS Safety Report 22198590 (Version 2)
Quarter: 2023Q2

REPORT INFORMATION
  Report Type: Spontaneous
  Country: JP (occurrence: JP)
  Receive Date: 20230411
  Receipt Date: 20230501
  Transmission Date: 20230722
  Serious: Yes (Other)
  Sender: FDA-Public Use
  Company Number: JP-ANIPHARMA-2023-JP-000133

PATIENT
  Sex: Female

DRUGS (3)
  1. CANDESARTAN CILEXETIL [Suspect]
     Active Substance: CANDESARTAN CILEXETIL
     Indication: Hypertension
     Dosage: DOSAGE IS UNKNOWN. TABLETS 4/ DOSAGE IS UNKNOWN. TABLETS 12
     Route: 048
  2. LOXOPROFEN SODIUM [Concomitant]
     Active Substance: LOXOPROFEN SODIUM
     Route: 048
  3. MYONAL [Concomitant]
     Route: 065

REACTIONS (8)
  - Arrhythmia [Recovered/Resolved]
  - Alopecia [Unknown]
  - Muscular weakness [Unknown]
  - Pruritus [Unknown]
  - Rash [Unknown]
  - Middle insomnia [Unknown]
  - Dizziness [Unknown]
  - Chest discomfort [Unknown]

NARRATIVE: CASE EVENT DATE: 20210101
